FAERS Safety Report 8168077-8 (Version None)
Quarter: 2012Q1

REPORT INFORMATION
  Report Type: 
  Country: None (occurrence: None)
  Receive Date: 20120227
  Receipt Date: 20120216
  Transmission Date: 20120608
  Serious: Yes (Hospitalization, Other)
  Sender: FDA-Public Use
  Company Number: PHHY2010AU48614

PATIENT
  Sex: Male

DRUGS (2)
  1. CLOZARIL [Suspect]
     Dosage: 600 MG, UNK
     Route: 048
     Dates: start: 20070412
  2. CLOZARIL [Suspect]
     Dosage: 350 MG MANE AND 400MG NOCTE
     Route: 048
     Dates: start: 20090101

REACTIONS (6)
  - MENTAL DISORDER [None]
  - ANXIETY [None]
  - SCHIZOPHRENIA [None]
  - STRESS [None]
  - AGITATION [None]
  - WRONG TECHNIQUE IN DRUG USAGE PROCESS [None]
